FAERS Safety Report 6282241-4 (Version None)
Quarter: 2009Q3

REPORT INFORMATION
  Report Type: 
  Country: None (occurrence: None)
  Receive Date: 20090722
  Receipt Date: 20090710
  Transmission Date: 20100115
  Serious: Yes (Death)
  Sender: FDA-Public Use
  Company Number: 2008AL010343

PATIENT
  Age: 63 Year
  Sex: Male

DRUGS (20)
  1. DIGOXIN [Suspect]
     Indication: HEART RATE IRREGULAR
     Dosage: 0.125MG, DAILY, PO
     Route: 048
     Dates: start: 19920101
  2. ADVAIR DISKUS 250/50 [Concomitant]
  3. ALBUTEROL [Concomitant]
  4. POTASSIUM CL (10MEQ) [Concomitant]
  5. WARFARIN SODIUM [Concomitant]
  6. TERAZOSIN [Concomitant]
  7. ACIPHEX [Concomitant]
  8. ASPIRIN [Concomitant]
  9. LASIX [Concomitant]
  10. COREG [Concomitant]
  11. DILTIAZEM [Concomitant]
  12. NIFEDIPINE [Concomitant]
  13. ZYRTEC [Concomitant]
  14. CARTIA XT [Concomitant]
  15. LEVAQUIN [Concomitant]
  16. FUROSEMIDE [Concomitant]
  17. SINGULAIR [Concomitant]
  18. ASMANEX TWISTHALER [Concomitant]
  19. PREDNISONE [Concomitant]
  20. DOXYCYCLINE [Concomitant]

REACTIONS (12)
  - ACTIVITIES OF DAILY LIVING IMPAIRED [None]
  - ANOXIC ENCEPHALOPATHY [None]
  - ARRHYTHMIA [None]
  - BLOOD PRESSURE FLUCTUATION [None]
  - CARDIAC DISORDER [None]
  - DIZZINESS [None]
  - DYSPNOEA [None]
  - INJURY [None]
  - PALPITATIONS [None]
  - RENAL FAILURE ACUTE [None]
  - UNEVALUABLE EVENT [None]
  - VENTRICULAR FIBRILLATION [None]
